FAERS Safety Report 8087106-3 (Version None)
Quarter: 2012Q1

REPORT INFORMATION
  Report Type: 
  Country: None (occurrence: None)
  Receive Date: 20120128
  Receipt Date: 20110523
  Transmission Date: 20120608
  Serious: No
  Sender: FDA-Public Use
  Company Number: US-ABBOTT-11P-163-0727967-00

PATIENT
  Age: 42 Year
  Sex: Male

DRUGS (2)
  1. HUMIRA [Suspect]
     Indication: COLITIS
     Dosage: LOADING DOSE
     Dates: start: 20110507, end: 20110521
  2. PRANDIN [Concomitant]
     Indication: DIABETES MELLITUS

REACTIONS (7)
  - PYREXIA [None]
  - NAUSEA [None]
  - DIARRHOEA HAEMORRHAGIC [None]
  - DIARRHOEA [None]
  - ABDOMINAL PAIN LOWER [None]
  - FATIGUE [None]
  - COLITIS [None]
